FAERS Safety Report 10183917 (Version 1)
Quarter: 2014Q2

REPORT INFORMATION
  Report Type: Spontaneous
  Country: US (occurrence: US)
  Receive Date: 20140520
  Receipt Date: 20140520
  Transmission Date: 20141212
  Serious: No
  Sender: FDA-Public Use
  Company Number: US-BAXTER-2014BAX022463

PATIENT
  Sex: Female

DRUGS (3)
  1. GAMMAGARD LIQUID [Suspect]
     Indication: PRODUCT USED FOR UNKNOWN INDICATION
  2. 0.9% SODIUM CHLORIDE INJECTION [Suspect]
     Indication: OFF LABEL USE
  3. 0.9% SODIUM CHLORIDE INJECTION [Suspect]
     Indication: OFF LABEL USE

REACTIONS (2)
  - Drug administration error [Recovered/Resolved]
  - No adverse event [Recovered/Resolved]
